FAERS Safety Report 6329618-6 (Version None)
Quarter: 2009Q3

REPORT INFORMATION
  Report Type: 
  Country: None (occurrence: None)
  Receive Date: 20090826
  Receipt Date: 20090824
  Transmission Date: 20100115
  Serious: Yes (Death)
  Sender: FDA-Public Use
  Company Number: US-GILEAD-2009-0022974

PATIENT
  Sex: Female
  Weight: 46.762 kg

DRUGS (19)
  1. LETAIRIS [Suspect]
     Indication: PULMONARY ARTERIAL HYPERTENSION
     Route: 048
     Dates: start: 20071101
  2. METOPROLOL [Concomitant]
  3. SIMVASTATIN [Concomitant]
  4. ASPIRIN [Concomitant]
  5. OXYGEN [Concomitant]
  6. LYRICA [Concomitant]
  7. ALPRAZOLAM [Concomitant]
  8. LANTUS [Concomitant]
  9. CALCITRIOL [Concomitant]
  10. NOVOLOG [Concomitant]
  11. BENADRYL [Concomitant]
  12. NAPRELAN [Concomitant]
  13. OMEPRAZOLE [Concomitant]
  14. HYDROCODONE BITARTRATE + ACETAMINOPHEN [Concomitant]
  15. VITAMIN D [Concomitant]
  16. OXYCODONE [Concomitant]
  17. LONOX [Concomitant]
  18. RENAGEL [Concomitant]
  19. PHOSLO [Concomitant]

REACTIONS (2)
  - ENDOCARDITIS [None]
  - SEPSIS [None]
